FAERS Safety Report 8800462 (Version 2)
Quarter: 2015Q1

REPORT INFORMATION
  Report Type: Report from Study
  Country: US (occurrence: US)
  Receive Date: 20120921
  Receipt Date: 20150304
  Transmission Date: 20150721
  Serious: Yes (Death)
  Sender: FDA-Public Use
  Company Number: US-ROCHE-1103593

PATIENT
  Sex: Female

DRUGS (3)
  1. AVASTIN [Suspect]
     Active Substance: BEVACIZUMAB
     Indication: GENITAL NEOPLASM MALIGNANT FEMALE
     Route: 042
     Dates: start: 20050106
  2. EPOGEN [Concomitant]
     Active Substance: ERYTHROPOIETIN
     Route: 058
  3. ETOPOSIDE. [Concomitant]
     Active Substance: ETOPOSIDE
     Route: 048

REACTIONS (9)
  - Decreased appetite [Unknown]
  - Pain [Unknown]
  - Death [Fatal]
  - Fatigue [Unknown]
  - Anxiety [Unknown]
  - Mood altered [Unknown]
  - Nausea [Unknown]
  - Vomiting [Unknown]
  - Alopecia [Unknown]
